FAERS Safety Report 8888259 (Version 3)
Quarter: 2012Q4

REPORT INFORMATION
  Report Type: 
  Country: US (occurrence: US)
  Receive Date: 20121106
  Receipt Date: 20121226
  Transmission Date: 20130627
  Serious: Yes (Death, Other)
  Sender: FDA-Public Use
  Company Number: US-PFIZER INC-2012272952

PATIENT
  Age: 74 Year
  Sex: Male

DRUGS (11)
  1. SUTENT [Suspect]
     Indication: LUNG NEOPLASM
     Dosage: 50 mg, 1x/day n(every 28 days)
     Route: 048
     Dates: start: 201209
  2. SUTENT [Suspect]
     Indication: RENAL CELL CANCER
  3. OMEPRAZOLE [Concomitant]
     Dosage: UNK
  4. MORPHINE [Concomitant]
     Dosage: 50 mg, as needed
  5. LORTAB [Concomitant]
     Dosage: UNK
  6. TEMAZEPAM [Concomitant]
     Dosage: UNK
  7. ASPIRIN [Concomitant]
     Dosage: 81 mg, 1x/day
  8. SENOKOT [Concomitant]
     Dosage: UNK
  9. OXYGEN [Concomitant]
     Dosage: UNK, (2L/min continuous)
  10. LEXAPRO [Concomitant]
     Dosage: UNK
  11. ROXANOL [Concomitant]
     Indication: PAIN
     Dosage: UNK (aerosolized morphine)

REACTIONS (10)
  - Death [Fatal]
  - Nausea [Unknown]
  - Vomiting [Unknown]
  - Oral pain [Unknown]
  - Weight decreased [Unknown]
  - Decreased appetite [Unknown]
  - Ageusia [Unknown]
  - Musculoskeletal chest pain [Unknown]
  - Depression [Unknown]
  - Quality of life decreased [Unknown]
